FAERS Safety Report 18870901 (Version 11)
Quarter: 2022Q1

REPORT INFORMATION
  Report Type: Report from Study
  Country: PA (occurrence: PA)
  Receive Date: 20210209
  Receipt Date: 20220307
  Transmission Date: 20220423
  Serious: Yes (Hospitalization, Other)
  Sender: FDA-Public Use
  Company Number: PA-ABBVIE-21K-125-3759529-00

PATIENT
  Sex: Female
  Weight: 86 kg

DRUGS (5)
  1. HUMIRA [Suspect]
     Active Substance: ADALIMUMAB
     Indication: Rheumatoid arthritis
     Route: 058
     Dates: start: 20191217, end: 20210301
  2. HUMIRA [Suspect]
     Active Substance: ADALIMUMAB
     Route: 058
     Dates: start: 2021, end: 20211025
  3. COVID-19 VACCINE NOS [Suspect]
     Active Substance: COVID-19 VACCINE NOS
     Indication: COVID-19 immunisation
     Route: 030
     Dates: start: 20210811, end: 20210811
  4. AMLODIPINE [Concomitant]
     Active Substance: AMLODIPINE BESYLATE
     Indication: Hypertension
     Route: 048
  5. PREDNISOLONE [Concomitant]
     Active Substance: PREDNISOLONE
     Indication: Pain
     Dosage: 1 IN THE MORNING AND OTHER AT THE NIGHT

REACTIONS (61)
  - Anorectal ulcer [Recovered/Resolved]
  - Anorectal ulcer [Not Recovered/Not Resolved]
  - Haemorrhoids [Recovering/Resolving]
  - Haemorrhage [Recovered/Resolved]
  - Abdominal hernia [Not Recovered/Not Resolved]
  - Glaucoma [Not Recovered/Not Resolved]
  - Haemoglobin decreased [Recovering/Resolving]
  - Depression [Recovering/Resolving]
  - Rectal haemorrhage [Recovered/Resolved]
  - Diverticulitis [Not Recovered/Not Resolved]
  - Rectal haemorrhage [Not Recovered/Not Resolved]
  - Urinary tract infection [Recovered/Resolved]
  - Exercise lack of [Not Recovered/Not Resolved]
  - Intentional product misuse [Unknown]
  - Haemarthrosis [Not Recovered/Not Resolved]
  - Haemoglobin abnormal [Not Recovered/Not Resolved]
  - Osteoarthritis [Not Recovered/Not Resolved]
  - Asthenia [Not Recovered/Not Resolved]
  - Gait disturbance [Recovering/Resolving]
  - Knee deformity [Not Recovered/Not Resolved]
  - Salivary hypersecretion [Not Recovered/Not Resolved]
  - Discouragement [Not Recovered/Not Resolved]
  - Vaccination site pain [Not Recovered/Not Resolved]
  - Joint instability [Not Recovered/Not Resolved]
  - Product label issue [Unknown]
  - Head discomfort [Recovering/Resolving]
  - Glaucoma [Recovered/Resolved]
  - Tongue discolouration [Not Recovered/Not Resolved]
  - Constipation [Not Recovered/Not Resolved]
  - Ocular discomfort [Recovered/Resolved]
  - Feeling hot [Not Recovered/Not Resolved]
  - Vein disorder [Not Recovered/Not Resolved]
  - Ocular discomfort [Unknown]
  - Nasal congestion [Not Recovered/Not Resolved]
  - Hypoaesthesia [Not Recovered/Not Resolved]
  - Gastrooesophageal reflux disease [Not Recovered/Not Resolved]
  - Inflammatory pain [Not Recovered/Not Resolved]
  - Arthritis [Not Recovered/Not Resolved]
  - Abdominal distension [Not Recovered/Not Resolved]
  - Insomnia [Not Recovered/Not Resolved]
  - Emotional disorder [Not Recovered/Not Resolved]
  - Dysgeusia [Not Recovered/Not Resolved]
  - Visual impairment [Not Recovered/Not Resolved]
  - Pruritus [Not Recovered/Not Resolved]
  - Stress [Not Recovered/Not Resolved]
  - Peripheral swelling [Recovering/Resolving]
  - Arthritis [Recovering/Resolving]
  - Tension [Not Recovered/Not Resolved]
  - Pain in extremity [Not Recovered/Not Resolved]
  - Rheumatoid arthritis [Recovering/Resolving]
  - Abdominal discomfort [Recovering/Resolving]
  - Peripheral swelling [Not Recovered/Not Resolved]
  - Helicobacter infection [Not Recovered/Not Resolved]
  - Drug ineffective [Recovering/Resolving]
  - Pain [Recovering/Resolving]
  - Abdominal pain upper [Recovering/Resolving]
  - Headache [Not Recovered/Not Resolved]
  - Erythema [Not Recovered/Not Resolved]
  - Chest pain [Not Recovered/Not Resolved]
  - Arthralgia [Not Recovered/Not Resolved]
  - Therapeutic product effect incomplete [Not Recovered/Not Resolved]

NARRATIVE: CASE EVENT DATE: 20200101
